FAERS Safety Report 5335154-6 (Version None)
Quarter: 2007Q2

REPORT INFORMATION
  Report Type: 
  Country: None (occurrence: None)
  Receive Date: 20070525
  Receipt Date: 20070521
  Transmission Date: 20071010
  Serious: Yes (Death, Hospitalization)
  Sender: FDA-Public Use
  Company Number: US-MERCK-0705USA03749

PATIENT
  Age: 65 Year
  Sex: Male
  Weight: 72 kg

DRUGS (6)
  1. ZOCOR [Suspect]
     Route: 048
     Dates: start: 20030101
  2. XELODA [Suspect]
     Indication: COLON CANCER RECURRENT
     Route: 048
     Dates: start: 20061116, end: 20061221
  3. AVASTIN [Suspect]
     Indication: COLON CANCER RECURRENT
     Route: 042
     Dates: start: 20061116, end: 20061207
  4. LEVOFLOXACIN [Concomitant]
     Route: 065
     Dates: start: 20061201
  5. FLAGYL [Concomitant]
     Route: 065
     Dates: start: 20061201
  6. OXALIPLATIN [Suspect]
     Indication: COLON CANCER RECURRENT
     Route: 042
     Dates: start: 20061116, end: 20061207

REACTIONS (14)
  - ASTHENIA [None]
  - CARDIAC ARREST [None]
  - COLORECTAL CANCER [None]
  - COLORECTAL CANCER METASTATIC [None]
  - DIARRHOEA [None]
  - HEPATITIS [None]
  - INTESTINAL ISCHAEMIA [None]
  - LARGE INTESTINE PERFORATION [None]
  - MUCOSAL INFLAMMATION [None]
  - RHABDOMYOLYSIS [None]
  - SEPSIS [None]
  - SHOCK [None]
  - STOMATITIS [None]
  - TRANSAMINASES INCREASED [None]
